FAERS Safety Report 26179051 (Version 1)
Quarter: 2025Q4

REPORT INFORMATION
  Report Type: Spontaneous
  Country: EU (occurrence: EU)
  Receive Date: 20251219
  Receipt Date: 20251219
  Transmission Date: 20260118
  Serious: Yes (Other)
  Sender: RANBAXY
  Company Number: EU-LRB-01084593

PATIENT
  Age: 75 Year
  Sex: Female
  Weight: 75.4 kg

DRUGS (1)
  1. ROSUVASTATIN [Suspect]
     Active Substance: ROSUVASTATIN
     Indication: Hypercholesterolaemia
     Dosage: UNK
     Route: 048
     Dates: start: 20240320, end: 20250403

REACTIONS (2)
  - Polyneuropathy [Unknown]
  - Myalgia [Unknown]
